FAERS Safety Report 7464587-7 (Version None)
Quarter: 2011Q2

REPORT INFORMATION
  Report Type: 
  Country: None (occurrence: None)
  Receive Date: 20110428
  Receipt Date: 20110412
  Transmission Date: 20111010
  Serious: Yes (Other)
  Sender: FDA-Public Use
  Company Number: 031073

PATIENT
  Sex: Female
  Weight: 79.8 kg

DRUGS (1)
  1. LACOSAMIDE [Suspect]
     Indication: COMPLEX PARTIAL SEIZURES
     Dosage: 50 MG, BID, ORAL
     Route: 048
     Dates: start: 20110404, end: 20110406

REACTIONS (7)
  - THINKING ABNORMAL [None]
  - HEADACHE [None]
  - DYSARTHRIA [None]
  - HYPERREFLEXIA [None]
  - GAIT DISTURBANCE [None]
  - BALANCE DISORDER [None]
  - COGNITIVE DISORDER [None]
